FAERS Safety Report 8053646-6 (Version None)
Quarter: 2012Q1

REPORT INFORMATION
  Report Type: 
  Country: None (occurrence: None)
  Receive Date: 20120118
  Receipt Date: 20120111
  Transmission Date: 20120608
  Serious: No
  Sender: FDA-Public Use
  Company Number: US-PFIZER INC-2012008822

PATIENT
  Sex: Male

DRUGS (2)
  1. LYRICA [Suspect]
     Dosage: 150 MG, FREQUENCY UNKNOWN
  2. LYRICA [Suspect]
     Dosage: UNKNOWN

REACTIONS (2)
  - PARAESTHESIA [None]
  - PAIN [None]
